FAERS Safety Report 15861622 (Version 1)
Quarter: 2019Q1

REPORT INFORMATION
  Report Type: Spontaneous
  Country: PT (occurrence: PT)
  Receive Date: 20190124
  Receipt Date: 20190124
  Transmission Date: 20190417
  Serious: Yes (Other)
  Sender: FDA-Public Use
  Company Number: PT-ACCORD-103279

PATIENT
  Age: 67 Year
  Sex: Male

DRUGS (1)
  1. CARBOPLATIN ACCORD [Suspect]
     Active Substance: CARBOPLATIN
     Indication: LUNG NEOPLASM MALIGNANT
     Dosage: 500 MG IN 1 HOUR OF INFUSION
     Route: 042
     Dates: start: 20180129, end: 20180326

REACTIONS (3)
  - Dyspnoea [Recovered/Resolved]
  - Malaise [Recovered/Resolved]
  - Generalised erythema [Recovered/Resolved]

NARRATIVE: CASE EVENT DATE: 20180326
